FAERS Safety Report 5306583-1 (Version None)
Quarter: 2007Q2

REPORT INFORMATION
  Report Type: 
  Country: None (occurrence: None)
  Receive Date: 20070418
  Receipt Date: 20070410
  Transmission Date: 20071010
  Serious: Yes (Hospitalization)
  Sender: FDA-Public Use
  Company Number: 2007SP002212

PATIENT
  Age: 45 Year
  Sex: Male
  Weight: 69 kg

DRUGS (2)
  1. PEG-INTRON [Suspect]
     Indication: HEPATITIS C
     Dosage: 100 MCG; QW; SC
     Route: 058
     Dates: start: 20060202, end: 20060713
  2. REBETOL [Suspect]
     Indication: HEPATITIS C
     Dosage: 800 MG; QD; PO
     Route: 048
     Dates: start: 20060202, end: 20060719

REACTIONS (12)
  - ACANTHOLYSIS [None]
  - ANAL POLYP [None]
  - ATROPHY [None]
  - CALCULUS PROSTATIC [None]
  - DIZZINESS [None]
  - ERYTHEMA [None]
  - FEELING ABNORMAL [None]
  - LYMPHADENOPATHY [None]
  - PEMPHIGUS [None]
  - SCAB [None]
  - SKIN DISCOLOURATION [None]
  - SKIN EROSION [None]
